FAERS Safety Report 25768898 (Version 1)
Quarter: 2025Q3

REPORT INFORMATION
  Report Type: Spontaneous
  Country: US (occurrence: US)
  Receive Date: 20250905
  Receipt Date: 20250905
  Transmission Date: 20251020
  Serious: No
  Sender: INSUD PHARMA
  Company Number: US-INSUD PHARMA-2508US07019

PATIENT

DRUGS (1)
  1. SLYND [Suspect]
     Active Substance: DROSPIRENONE
     Indication: Product used for unknown indication
     Route: 048
     Dates: start: 202507

REACTIONS (2)
  - Heavy menstrual bleeding [Not Recovered/Not Resolved]
  - Menstrual clots [Not Recovered/Not Resolved]

NARRATIVE: CASE EVENT DATE: 20250801
